FAERS Safety Report 9363940 (Version 2)
Quarter: 2013Q3

REPORT INFORMATION
  Report Type: Spontaneous
  Country: JP (occurrence: JP)
  Receive Date: 20130624
  Receipt Date: 20130705
  Transmission Date: 20140515
  Serious: Yes (Hospitalization)
  Sender: FDA-Public Use
  Company Number: JP-NOVOPROD-380642

PATIENT
  Age: 84 Year
  Sex: Male
  Weight: 51 kg

DRUGS (11)
  1. NOVORAPID CHU FLEXPEN [Suspect]
     Indication: TYPE 2 DIABETES MELLITUS
     Dosage: 6 TO 22 UT
     Route: 058
     Dates: start: 20110731
  2. LANTUS [Suspect]
     Indication: TYPE 2 DIABETES MELLITUS
     Dosage: 4 TO 10 UT
     Route: 058
     Dates: start: 20110731, end: 20130312
  3. PREDONINE                          /00016203/ [Concomitant]
     Indication: POLYMYALGIA RHEUMATICA
     Dosage: 4 TO 15 MG
     Route: 048
     Dates: start: 20110729
  4. VFEND [Concomitant]
     Indication: BRONCHOPULMONARY ASPERGILLOSIS
     Dosage: 400 MG, QD
     Route: 048
     Dates: start: 20111027
  5. GASTER D [Concomitant]
     Indication: GASTRIC ULCER
     Dosage: 10 MG, QD
     Route: 048
     Dates: start: 20110823
  6. RENIVACE [Concomitant]
     Indication: HYPERTENSION
     Dosage: 2.5 MG, QD
     Route: 048
     Dates: start: 20110810
  7. LASIX                              /00032601/ [Concomitant]
     Indication: HYPERTENSION
     Dosage: 20 MG, QD
     Route: 057
     Dates: start: 20110719
  8. ONEALFA [Concomitant]
     Indication: ADVERSE DRUG REACTION
     Dosage: 0.5 MG, QD
     Route: 048
     Dates: start: 20110803
  9. ASPARA POTASSIUM [Concomitant]
     Indication: HYPOKALAEMIA
     Dosage: 900 MG, QD
     Route: 048
     Dates: start: 20120202
  10. ALDACTONE                          /00006201/ [Concomitant]
     Indication: HYPOKALAEMIA
     Dosage: 25 MG, QD
     Route: 048
     Dates: start: 20120202
  11. METHYCOBAL [Concomitant]
     Indication: TYPE 2 DIABETES MELLITUS
     Dosage: 500 ?G, QD
     Route: 048
     Dates: start: 20120202

REACTIONS (2)
  - Nocardiosis [Recovered/Resolved]
  - Muscle abscess [Recovered/Resolved]
